FAERS Safety Report 4479514-4 (Version None)
Quarter: 2004Q4

REPORT INFORMATION
  Report Type: 
  Country: None (occurrence: None)
  Receive Date: 20041015
  Receipt Date: 20041008
  Transmission Date: 20050328
  Serious: No
  Sender: FDA-Public Use
  Company Number: 2004UW19009

PATIENT

DRUGS (1)
  1. NAROPIN [Suspect]
     Indication: ANAESTHESIA

REACTIONS (2)
  - CEREBROVASCULAR ACCIDENT [None]
  - HYPONATRAEMIA [None]
